FAERS Safety Report 4421182-1 (Version None)
Quarter: 2004Q3

REPORT INFORMATION
  Report Type: 
  Country: None (occurrence: None)
  Receive Date: 20040804
  Receipt Date: 20040719
  Transmission Date: 20050211
  Serious: Yes (Hospitalization)
  Sender: FDA-Public Use
  Company Number: B0339611A

PATIENT
  Age: 66 Year
  Sex: Female
  Weight: 46.9019 kg

DRUGS (4)
  1. EPIVIR [Suspect]
     Dosage: 100 MG / PER DAY
     Dates: start: 20020221
  2. STRONG NEO MINOPHAGEN C [Concomitant]
  3. ETHANOL [Concomitant]
  4. ADEFOVIR DIPIVOXIL KIT [Concomitant]

REACTIONS (2)
  - HEPATIC NEOPLASM MALIGNANT [None]
  - HEPATITIS [None]
